FAERS Safety Report 5587648-6 (Version None)
Quarter: 2008Q1

REPORT INFORMATION
  Report Type: 
  Country: None (occurrence: None)
  Receive Date: 20080108
  Receipt Date: 20071221
  Transmission Date: 20080703
  Serious: Yes (Other)
  Sender: FDA-Public Use
  Company Number: CIP07002723

PATIENT
  Age: 57 Year
  Sex: Female

DRUGS (1)
  1. ACTONEL [Suspect]
     Dosage: ORAL
     Route: 048

REACTIONS (2)
  - OSTEONECROSIS [None]
  - TOOTH LOSS [None]
